FAERS Safety Report 24389114 (Version 2)
Quarter: 2025Q3

REPORT INFORMATION
  Report Type: Spontaneous
  Country: US (occurrence: US)
  Receive Date: 20241002
  Receipt Date: 20250810
  Transmission Date: 20251021
  Serious: No
  Sender: ALEXION PHARMACEUTICALS
  Company Number: US-AstraZeneca-CH-00714854A

PATIENT

DRUGS (1)
  1. BREZTRI [Suspect]
     Active Substance: BUDESONIDE\FORMOTEROL\GLYCOPYRROLATE
     Indication: Chronic obstructive pulmonary disease
     Route: 065

REACTIONS (2)
  - Oral candidiasis [Recovered/Resolved]
  - Candida infection [Recovered/Resolved]
